FAERS Safety Report 18574579 (Version 1)
Quarter: 2020Q4

REPORT INFORMATION
  Report Type: Spontaneous
  Country: US (occurrence: US)
  Receive Date: 20201202
  Receipt Date: 20201202
  Transmission Date: 20210114
  Serious: Yes (Hospitalization)
  Sender: FDA-Public Use
  Company Number: None

PATIENT
  Age: 76 Year
  Sex: Male
  Weight: 87 kg

DRUGS (1)
  1. CEFEPIME (CEFEPIME HCL 2GM/VIL INJ) [Suspect]
     Active Substance: CEFEPIME HYDROCHLORIDE
     Indication: APPENDICITIS
     Dosage: ?          OTHER FREQUENCY:OTHER;?
     Route: 042
     Dates: start: 20200806, end: 20200824

REACTIONS (3)
  - Asthenia [None]
  - Myoclonus [None]
  - Abdominal abscess [None]

NARRATIVE: CASE EVENT DATE: 20200814
